FAERS Safety Report 11206745 (Version 2)
Quarter: 2015Q2

REPORT INFORMATION
  Report Type: Spontaneous
  Country: US (occurrence: US)
  Receive Date: 20150622
  Receipt Date: 20150622
  Transmission Date: 20150821
  Serious: Yes (Hospitalization)
  Sender: FDA-Public Use
  Company Number: US-MPIJNJ-2011-04087

PATIENT
  Age: 71 Year
  Sex: Male
  Weight: 72.9 kg

DRUGS (2)
  1. VELCADE [Suspect]
     Active Substance: BORTEZOMIB
     Dosage: 1.3 MG/M2, UNK
     Dates: start: 20110718
  2. VELCADE [Suspect]
     Active Substance: BORTEZOMIB
     Indication: PLASMA CELL MYELOMA
     Dosage: 2.5 MG/M2, CYCLIC
     Route: 042
     Dates: start: 20110607, end: 20110610

REACTIONS (4)
  - Streptococcal bacteraemia [Unknown]
  - Renal failure [Recovered/Resolved]
  - Pyrexia [Recovered/Resolved]
  - Pancytopenia [Unknown]

NARRATIVE: CASE EVENT DATE: 20110704
